FAERS Safety Report 17890548 (Version 2)
Quarter: 2020Q3

REPORT INFORMATION
  Report Type: Report from Study
  Country: US (occurrence: US)
  Receive Date: 20200612
  Receipt Date: 20200901
  Transmission Date: 20201103
  Serious: Yes (Death, Hospitalization, Other)
  Sender: FDA-Public Use
  Company Number: US-ASTELLAS-2018US031718

PATIENT
  Age: 86 Year
  Sex: Male

DRUGS (1)
  1. ENZALUTAMIDE [Suspect]
     Active Substance: ENZALUTAMIDE
     Indication: PRODUCT USED FOR UNKNOWN INDICATION
     Route: 048
     Dates: start: 20200324

REACTIONS (5)
  - Oedema [Unknown]
  - Vomiting [Unknown]
  - Underdose [Unknown]
  - Death [Fatal]
  - Product availability issue [Unknown]

NARRATIVE: CASE EVENT DATE: 20200302
